FAERS Safety Report 4698130-2 (Version None)
Quarter: 2005Q2

REPORT INFORMATION
  Report Type: 
  Country: None (occurrence: None)
  Receive Date: 20050621
  Receipt Date: 20041105
  Transmission Date: 20051028
  Serious: Yes (Other)
  Sender: FDA-Public Use
  Company Number: 2004090817

PATIENT
  Age: 76 Year
  Sex: Female

DRUGS (1)
  1. CELEBREX [Suspect]
     Indication: OSTEOARTHRITIS
     Dosage: 200 MG (200 MG,1 IN 1 D), ORAL
     Route: 048

REACTIONS (2)
  - BLADDER DISORDER [None]
  - CEREBROVASCULAR ACCIDENT [None]
